FAERS Safety Report 8287904-7 (Version None)
Quarter: 2012Q2

REPORT INFORMATION
  Report Type: 
  Country: None (occurrence: None)
  Receive Date: 20120416
  Receipt Date: 20120412
  Transmission Date: 20120825
  Serious: Yes (Life-Threatening)
  Sender: FDA-Public Use
  Company Number: CN-ASTRAZENECA-2012SE23755

PATIENT
  Age: 20 Year
  Sex: Male

DRUGS (7)
  1. PROPOFOL [Suspect]
  2. LIDOCAINE [Concomitant]
  3. EPINEPHRINE [Concomitant]
  4. DEXAMETHASONE [Concomitant]
  5. FENTANYL [Concomitant]
  6. SODIUM CHLORIDE [Concomitant]
  7. AZTREONAM [Concomitant]

REACTIONS (1)
  - ANAPHYLACTIC SHOCK [None]
